FAERS Safety Report 21081776 (Version 1)
Quarter: 2022Q3

REPORT INFORMATION
  Report Type: Spontaneous
  Country: US (occurrence: None)
  Receive Date: 20220714
  Receipt Date: 20220714
  Transmission Date: 20221026
  Serious: Yes (Hospitalization)
  Sender: FDA-Public Use
  Company Number: None

PATIENT
  Sex: Male
  Weight: 16.6 kg

DRUGS (2)
  1. CYCLOPHOSPHAMIDE [Suspect]
     Active Substance: CYCLOPHOSPHAMIDE
     Dates: end: 20220614
  2. THIOTEPA [Suspect]
     Active Substance: THIOTEPA
     Dates: end: 20220611

REACTIONS (5)
  - Pyrexia [None]
  - Septic shock [None]
  - Alpha haemolytic streptococcal infection [None]
  - Respiratory disorder [None]
  - Acute respiratory distress syndrome [None]

NARRATIVE: CASE EVENT DATE: 20220626
